FAERS Safety Report 8604734-4 (Version None)
Quarter: 2012Q3

REPORT INFORMATION
  Report Type: 
  Country: None (occurrence: None)
  Receive Date: 20120820
  Receipt Date: 20120809
  Transmission Date: 20120928
  Serious: Yes (Other)
  Sender: FDA-Public Use
  Company Number: ES-JNJFOC-20120806083

PATIENT
  Sex: Female
  Weight: 68 kg

DRUGS (3)
  1. LOPERAMIDE HYDROCHLORIDE [Suspect]
     Indication: DIARRHOEA
     Dosage: 6 MG TOTAL
     Route: 048
     Dates: start: 20120711, end: 20120715
  2. RABEPRAZOLE SODIUM [Concomitant]
     Indication: PRODUCT USED FOR UNKNOWN INDICATION
     Route: 048
  3. ATACAND HCT [Concomitant]
     Indication: PRODUCT USED FOR UNKNOWN INDICATION
     Route: 065

REACTIONS (1)
  - LIVER INJURY [None]
